FAERS Safety Report 8509547-X (Version None)
Quarter: 2012Q3

REPORT INFORMATION
  Report Type: 
  Country: None (occurrence: None)
  Receive Date: 20120702
  Receipt Date: 20120621
  Transmission Date: 20120928
  Serious: Yes (Hospitalization)
  Sender: FDA-Public Use
  Company Number: 2012SP032393

PATIENT
  Age: 53 Year
  Sex: Female

DRUGS (3)
  1. VICTRELIS [Suspect]
     Indication: HEPATITIS C
     Dosage: 200 MG;TID;PO
     Route: 048
  2. PEGATRON (PEGYLATED INTERFERON ALFA-2B W/RIBAVIRIN) [Suspect]
     Indication: HEPATITIS C
  3. METOCLOPRAMIDE [Concomitant]

REACTIONS (5)
  - NAUSEA [None]
  - DECREASED APPETITE [None]
  - ABDOMINAL PAIN [None]
  - FEBRILE NEUTROPENIA [None]
  - RASH PAPULAR [None]
